FAERS Safety Report 13898438 (Version 1)
Quarter: 2017Q3

REPORT INFORMATION
  Report Type: Spontaneous
  Country: US (occurrence: US)
  Receive Date: 20170823
  Receipt Date: 20170823
  Transmission Date: 20171127
  Serious: No
  Sender: FDA-Public Use
  Company Number: GXBR2017US002258

PATIENT
  Sex: Male
  Weight: 77 kg

DRUGS (2)
  1. CLONAZEPAM TABLETS, USP [Suspect]
     Active Substance: CLONAZEPAM
     Indication: TINNITUS
     Dosage: 0.5 MG, BID (IN MORNING AND NIGHT)
     Route: 065
     Dates: start: 2012
  2. ALPRAZOLAM TABLETS USP [Suspect]
     Active Substance: ALPRAZOLAM
     Indication: TINNITUS
     Dosage: 0.5 MG, BID (IN MORNING AND NIGHT)
     Route: 065
     Dates: start: 2012

REACTIONS (2)
  - Product use in unapproved indication [Unknown]
  - Drug ineffective [Unknown]

NARRATIVE: CASE EVENT DATE: 2012
